FAERS Safety Report 7773753-2 (Version None)
Quarter: 2011Q3

REPORT INFORMATION
  Report Type: 
  Country: None (occurrence: None)
  Receive Date: 20110923
  Receipt Date: 20100505
  Transmission Date: 20111222
  Serious: Yes (Other)
  Sender: FDA-Public Use
  Company Number: US-JNJFOC-20110906233

PATIENT
  Age: 1 Year
  Sex: Female
  Weight: 11.34 kg

DRUGS (2)
  1. CONCENTRATED TYLENOL INFANT DROPS [Suspect]
     Indication: TEETHING
     Dosage: 40 MG - 60 MG ONCE AT NIGHT
     Route: 048
     Dates: start: 20100504, end: 20100504
  2. CONCENTRATED TYLENOL INFANT DROPS [Suspect]
     Indication: PYREXIA
     Dosage: 40 MG - 60 MG ONCE AT NIGHT
     Route: 048
     Dates: start: 20100504, end: 20100504

REACTIONS (2)
  - CONVULSION [None]
  - PRODUCT QUALITY ISSUE [None]
